FAERS Safety Report 6145411-1 (Version None)
Quarter: 2009Q2

REPORT INFORMATION
  Report Type: 
  Country: None (occurrence: None)
  Receive Date: 20090402
  Receipt Date: 20090324
  Transmission Date: 20091009
  Serious: Yes (Other)
  Sender: FDA-Public Use
  Company Number: 98461

PATIENT
  Age: 24 Year
  Sex: Male

DRUGS (2)
  1. MUSCLE RUB CREAM ULTRA STRENGTH [Suspect]
     Indication: JOINT INJURY
     Dates: start: 20080306, end: 20090306
  2. VITAMIN SUPPLEMENTS (UNSPECIFIED) [Concomitant]

REACTIONS (7)
  - APPLICATION SITE BURN [None]
  - APPLICATION SITE ERYTHEMA [None]
  - APPLICATION SITE OEDEMA [None]
  - APPLICATION SITE SCAR [None]
  - APPLICATION SITE VESICLES [None]
  - SKIN HYPERPIGMENTATION [None]
  - WOUND [None]
